FAERS Safety Report 16574787 (Version 2)
Quarter: 2019Q3

REPORT INFORMATION
  Report Type: Report from Study
  Country: US (occurrence: US)
  Receive Date: 20190715
  Receipt Date: 20190805
  Transmission Date: 20191004
  Serious: Yes (Hospitalization, Other)
  Sender: FDA-Public Use
  Company Number: US-GILEAD-2019-0418347

PATIENT
  Age: 28 Year
  Sex: Male
  Weight: 73.5 kg

DRUGS (1)
  1. AZTREONAM LYSINE [Suspect]
     Active Substance: AZTREONAM LYSINE
     Indication: CYSTIC FIBROSIS
     Dosage: UNK, TID
     Route: 065
     Dates: start: 20140623

REACTIONS (2)
  - Cystic fibrosis related diabetes [Not Recovered/Not Resolved]
  - Haemoptysis [Recovered/Resolved]

NARRATIVE: CASE EVENT DATE: 201609
